FAERS Safety Report 16446763 (Version 1)
Quarter: 2019Q2

REPORT INFORMATION
  Report Type: Report from Study
  Country: DE (occurrence: DE)
  Receive Date: 20190618
  Receipt Date: 20190618
  Transmission Date: 20190711
  Serious: Yes (Hospitalization)
  Sender: FDA-Public Use
  Company Number: DE-PFIZER INC-2019254901

PATIENT
  Age: 49 Year
  Sex: Female
  Weight: 51.8 kg

DRUGS (5)
  1. CARBOPLATIN. [Suspect]
     Active Substance: CARBOPLATIN
     Indication: OVARIAN CANCER
     Dosage: 620 MG, UNK
     Route: 042
     Dates: start: 20121005, end: 20121005
  2. PACLITAXEL. [Suspect]
     Active Substance: PACLITAXEL
     Indication: OVARIAN CANCER
     Dosage: 270 -275 MG, UNK
     Route: 065
     Dates: start: 20121005, end: 20121005
  3. CARBOPLATIN. [Suspect]
     Active Substance: CARBOPLATIN
     Dosage: 620 MG, UNK
     Route: 042
     Dates: start: 20121025, end: 20121025
  4. PACLITAXEL. [Suspect]
     Active Substance: PACLITAXEL
     Dosage: UNK
     Route: 065
     Dates: start: 20121025, end: 20121025
  5. BEVACIZUMAB. [Suspect]
     Active Substance: BEVACIZUMAB
     Indication: OVARIAN CANCER
     Dosage: 777 MG, EVERY 3 WEEKS
     Route: 042
     Dates: start: 20121025, end: 20121025

REACTIONS (3)
  - Vomiting [Unknown]
  - Failure to anastomose [Recovered/Resolved]
  - Hypersensitivity [Unknown]

NARRATIVE: CASE EVENT DATE: 20121028
